FAERS Safety Report 9700888 (Version 1)
Quarter: 2013Q4

REPORT INFORMATION
  Report Type: Report from Study
  Country: JP (occurrence: JP)
  Receive Date: 20131121
  Receipt Date: 20131121
  Transmission Date: 20140711
  Serious: Yes (Other)
  Sender: FDA-Public Use
  Company Number: JP-PFIZER INC-2013330308

PATIENT
  Sex: 0

DRUGS (2)
  1. METHYLPREDNISOLONE SODIUM SUCCINATE [Suspect]
     Dosage: 1 G/DAY
     Route: 041
  2. PREDNISOLONE [Concomitant]
     Dosage: 30 MG/DAY
     Route: 048

REACTIONS (1)
  - Panic disorder [Unknown]
